FAERS Safety Report 23951187 (Version 1)
Quarter: 2024Q2

REPORT INFORMATION
  Report Type: Report from Study
  Country: US (occurrence: US)
  Receive Date: 20240607
  Receipt Date: 20240607
  Transmission Date: 20240716
  Serious: No
  Sender: FDA-Public Use
  Company Number: US-SPRINGWORKS THERAPEUTICS-SW-001605

PATIENT
  Age: 67 Year
  Sex: Female
  Weight: 99.773 kg

DRUGS (3)
  1. NIROGACESTAT [Suspect]
     Active Substance: NIROGACESTAT
     Indication: Product used for unknown indication
     Dosage: 150 MILLIGRAM, BID
     Route: 048
     Dates: start: 20240422
  2. TRAMADOL [Suspect]
     Active Substance: TRAMADOL\TRAMADOL HYDROCHLORIDE
     Indication: Pain
  3. GABAPENTIN [Suspect]
     Active Substance: GABAPENTIN
     Indication: Pain

REACTIONS (7)
  - Nasal dryness [Unknown]
  - Dry mouth [Unknown]
  - Paranasal sinus hyposecretion [Unknown]
  - Thirst [Unknown]
  - Dyspepsia [Unknown]
  - Diarrhoea [Unknown]
  - Nausea [Unknown]

NARRATIVE: CASE EVENT DATE: 20240424
